FAERS Safety Report 6845281-X (Version None)
Quarter: 2010Q3

REPORT INFORMATION
  Report Type: 
  Country: None (occurrence: None)
  Receive Date: 20100715
  Receipt Date: 20070817
  Transmission Date: 20110219
  Serious: No
  Sender: FDA-Public Use
  Company Number: US-PFIZER INC-2007069794

PATIENT
  Sex: Female
  Weight: 81.818 kg

DRUGS (5)
  1. CHANTIX [Suspect]
     Indication: SMOKING CESSATION THERAPY
     Dosage: INTERVAL: EVERY DAY
     Route: 048
     Dates: start: 20070103, end: 20070101
  2. NEXIUM [Concomitant]
     Indication: GASTROOESOPHAGEAL REFLUX DISEASE
  3. PREMARIN [Concomitant]
  4. ADDERALL XR 10 [Concomitant]
  5. CELEXA [Concomitant]

REACTIONS (1)
  - FLATULENCE [None]
